FAERS Safety Report 16654281 (Version 1)
Quarter: 2019Q3

REPORT INFORMATION
  Report Type: Report from Study
  Country: JP (occurrence: JP)
  Receive Date: 20190731
  Receipt Date: 20190731
  Transmission Date: 20191004
  Serious: Yes (Hospitalization)
  Sender: FDA-Public Use
  Company Number: JP-EISAI MEDICAL RESEARCH-EC-2019-059692

PATIENT
  Age: 28 Year
  Sex: Female
  Weight: 60 kg

DRUGS (9)
  1. VIMPAT [Concomitant]
     Active Substance: LACOSAMIDE
  2. BROTIZOLAM [Concomitant]
     Active Substance: BROTIZOLAM
  3. FYCOMPA [Suspect]
     Active Substance: PERAMPANEL
     Indication: PARTIAL SEIZURES
     Route: 048
     Dates: start: 20170830, end: 20170913
  4. FYCOMPA [Suspect]
     Active Substance: PERAMPANEL
     Route: 048
     Dates: start: 20171101
  5. E KEPPRA [Concomitant]
     Active Substance: LEVETIRACETAM
  6. ROZEREM [Concomitant]
     Active Substance: RAMELTEON
  7. FYCOMPA [Suspect]
     Active Substance: PERAMPANEL
     Route: 048
     Dates: start: 20170914, end: 20171031
  8. MICARDIS [Concomitant]
     Active Substance: TELMISARTAN
  9. SENNOSIDE [Concomitant]
     Active Substance: SENNOSIDES

REACTIONS (5)
  - Nausea [Unknown]
  - Hypertension [Recovered/Resolved]
  - Headache [Unknown]
  - Pyrexia [Recovered/Resolved]
  - Decreased appetite [Unknown]

NARRATIVE: CASE EVENT DATE: 20180210
